FAERS Safety Report 9855929 (Version 1)
Quarter: 2013Q4

REPORT INFORMATION
  Report Type: Spontaneous
  Country: US (occurrence: None)
  Receive Date: 20131226
  Receipt Date: 20131226
  Transmission Date: 20140711
  Serious: No
  Sender: FDA-Public Use
  Company Number: PHHY2013US059426

PATIENT
  Age: 42 Year
  Sex: Female
  Weight: 62.6 kg

DRUGS (4)
  1. GILENYA (FINGOLIMOD) CAPSULE, 0.5MG [Suspect]
     Indication: MULTIPLE SCLEROSIS
     Route: 048
  2. VIT D (ERGOCALCIFEROL) [Concomitant]
  3. PROZAC (FLUOXETINE HYDROCHLORIDE) [Concomitant]
  4. ADDERALL (AMFETAMINE ASPARTATE, AMFETAMINE SULFATE, DEXAMFETAMINE SACCHARATE, DEXAMFETAMINE SULFATE) [Concomitant]

REACTIONS (7)
  - Blood albumin decreased [None]
  - Deafness [None]
  - Presbyopia [None]
  - Lacrimation increased [None]
  - Fatigue [None]
  - Headache [None]
  - Dizziness [None]
